FAERS Safety Report 18472679 (Version 1)
Quarter: 2020Q4

REPORT INFORMATION
  Report Type: Spontaneous
  Country: FR (occurrence: FR)
  Receive Date: 20201106
  Receipt Date: 20201106
  Transmission Date: 20210114
  Serious: Yes (Hospitalization)
  Sender: FDA-Public Use
  Company Number: FR-TEVA-2020-FR-1844895

PATIENT
  Age: 67 Year
  Sex: Female
  Weight: 93 kg

DRUGS (15)
  1. AMLODIPINE ARROW 5 MG, COMPRIME [Concomitant]
     Active Substance: AMLODIPINE BESYLATE
  2. SIMVASTATINE EG 20 MG, COMPRIME PELLICULE SECABLE [Concomitant]
  3. ESIDREX [Concomitant]
     Active Substance: HYDROCHLOROTHIAZIDE
  4. KARDEGIC [Concomitant]
     Active Substance: ASPIRIN DL-LYSINE
  5. PRAZEPAM ARROW 10 MG, COMPRIME [Concomitant]
     Active Substance: PRAZEPAM
  6. RISPERIDONE MYLAN PHARMA [Concomitant]
     Active Substance: RISPERIDONE
  7. PROCORALAN 5 MG, COMPRIME PELLICULE [Concomitant]
     Active Substance: IVABRADINE HYDROCHLORIDE
  8. BISOCE 10 MG, COMPRIME PELLICULE SECABLE [Concomitant]
     Active Substance: BISOPROLOL FUMARATE
  9. EZETIMIBE MYLAN 10 MG, COMPRIME [Concomitant]
  10. LANSOPRAZOLE. [Concomitant]
     Active Substance: LANSOPRAZOLE
  11. JANUVIA [Concomitant]
     Active Substance: SITAGLIPTIN PHOSPHATE
  12. METFORMINE ARROW 1000 MG, COMPRIME PELLICULE SECABLE [Suspect]
     Active Substance: METFORMIN HYDROCHLORIDE
     Indication: TYPE 2 DIABETES MELLITUS
     Dosage: 2000MG
     Route: 048
     Dates: end: 20200527
  13. IOMERON [Interacting]
     Active Substance: IOMEPROL
     Indication: COMPUTERISED TOMOGRAM
     Dosage: 70ML
     Route: 051
     Dates: start: 20200522, end: 20200522
  14. FUMAFER 66 MG, COMPRIME PELLICULE [Concomitant]
     Active Substance: FERROUS FUMARATE
  15. RAMIPRIL MYLAN 5 MG, COMPRIME SECABLE [Concomitant]

REACTIONS (4)
  - Overdose [Recovered/Resolved]
  - Acute kidney injury [Recovered/Resolved]
  - Lactic acidosis [Recovered/Resolved]
  - Drug interaction [Unknown]

NARRATIVE: CASE EVENT DATE: 202005
